FAERS Safety Report 26071763 (Version 1)
Quarter: 2025Q4

REPORT INFORMATION
  Report Type: Spontaneous
  Country: US (occurrence: US)
  Receive Date: 20251120
  Receipt Date: 20251120
  Transmission Date: 20260117
  Serious: Yes (Other)
  Sender: NOVO NORDISK
  Company Number: US-NOVOPROD-743876

PATIENT
  Age: 66 Year
  Sex: Female

DRUGS (1)
  1. NOVOLIN R [Suspect]
     Active Substance: INSULIN HUMAN
     Indication: Type 1 diabetes mellitus
     Dosage: SLIDING SCALE FOUR TIMES A DAY
     Route: 058
     Dates: start: 1995

REACTIONS (5)
  - Macular degeneration [Unknown]
  - Cataract [Unknown]
  - Tooth infection [Unknown]
  - Gingivitis [Unknown]
  - Blood glucose increased [Not Recovered/Not Resolved]

NARRATIVE: CASE EVENT DATE: 20200701
